FAERS Safety Report 17816603 (Version 8)
Quarter: 2022Q3

REPORT INFORMATION
  Report Type: Other
  Country: JP (occurrence: JP)
  Receive Date: 20200522
  Receipt Date: 20220829
  Transmission Date: 20221027
  Serious: Yes (Death, Hospitalization)
  Sender: FDA-Public Use
  Company Number: JP-CHUGAI-A2020024174ROCHE

PATIENT
  Age: 34 Year
  Sex: Female

DRUGS (3)
  1. AVASTIN [Suspect]
     Active Substance: BEVACIZUMAB
     Indication: Ovarian cancer
     Dosage: DOSAGE IS UNCERTAIN.
     Route: 041
  2. PACLITAXEL [Concomitant]
     Active Substance: PACLITAXEL
     Indication: Ovarian cancer
     Dosage: DOSAGE IS UNCERTAIN.
     Route: 041
  3. INSULIN NOS [Concomitant]
     Active Substance: INSULIN NOS
     Indication: Type 2 diabetes mellitus
     Dosage: UNK
     Route: 065

REACTIONS (6)
  - Disease progression [Fatal]
  - Aneurysm ruptured [Unknown]
  - Shock haemorrhagic [Unknown]
  - Anaemia [Unknown]
  - Neutrophil count decreased [Unknown]
  - Neuropathy peripheral [Unknown]
